FAERS Safety Report 12225537 (Version 1)
Quarter: 2016Q1

REPORT INFORMATION
  Report Type: Spontaneous
  Country: CN (occurrence: CN)
  Receive Date: 20160331
  Receipt Date: 20160331
  Transmission Date: 20160526
  Serious: Yes (Other)
  Sender: FDA-Public Use
  Company Number: CN-BAXTER-2016BAX016608

PATIENT
  Age: 1 Year
  Sex: Female
  Weight: 10 kg

DRUGS (9)
  1. JIMIN (GLUCOSE/SODIUM CHLORIDE) [Suspect]
     Active Substance: DEXTROSE\SODIUM CHLORIDE
     Indication: GASTROENTERITIS ADENOVIRUS
     Route: 041
     Dates: start: 20150821, end: 20150821
  2. 0.9% SODIUM CHLORIDE INJECTION [Suspect]
     Active Substance: SODIUM CHLORIDE
     Indication: GASTROENTERITIS ADENOVIRUS
     Route: 041
     Dates: start: 20150821, end: 20150821
  3. OTSUKA (POTASSIUM CHLORIDE) [Suspect]
     Active Substance: POTASSIUM CHLORIDE
     Indication: GASTROENTERITIS ADENOVIRUS
     Route: 041
     Dates: start: 20150821, end: 20150821
  4. 0.9% SODIUM CHLORIDE INJECTION [Suspect]
     Active Substance: SODIUM CHLORIDE
     Indication: BACTERIAL INFECTION
  5. OTSUKA (POTASSIUM CHLORIDE) [Suspect]
     Active Substance: POTASSIUM CHLORIDE
     Indication: BACTERIAL INFECTION
  6. XIANG SHENG (RIBAVIRIN) [Suspect]
     Active Substance: RIBAVIRIN
     Indication: BACTERIAL INFECTION
  7. XIANG SHENG (RIBAVIRIN) [Suspect]
     Active Substance: RIBAVIRIN
     Indication: GASTROENTERITIS ADENOVIRUS
     Route: 041
     Dates: start: 20150821, end: 20150821
  8. 0.9% SODIUM CHLORIDE INJECTION [Suspect]
     Active Substance: SODIUM CHLORIDE
     Indication: OFF LABEL USE
  9. JIMIN (GLUCOSE/SODIUM CHLORIDE) [Suspect]
     Active Substance: DEXTROSE\SODIUM CHLORIDE
     Indication: BACTERIAL INFECTION

REACTIONS (1)
  - Rash papular [Recovered/Resolved]

NARRATIVE: CASE EVENT DATE: 20150821
